FAERS Safety Report 19005721 (Version 2)
Quarter: 2022Q4

REPORT INFORMATION
  Report Type: Spontaneous
  Country: US (occurrence: US)
  Receive Date: 20210314
  Receipt Date: 20221209
  Transmission Date: 20230112
  Serious: Yes (Other)
  Sender: FDA-Public Use
  Company Number: US-JNJFOC-20200223258

PATIENT
  Age: 57 Year
  Sex: Female

DRUGS (1)
  1. IMODIUM MULTI-SYMPTOM RELIEF [Suspect]
     Active Substance: DIMETHICONE\LOPERAMIDE HYDROCHLORIDE
     Indication: Irritable bowel syndrome
     Dosage: MAXIMUM DOSE 3 DAYS NOW
     Route: 048
     Dates: start: 20200210, end: 20200213

REACTIONS (3)
  - Choking [Not Recovered/Not Resolved]
  - Wrong technique in product usage process [Unknown]
  - Product formulation issue [Unknown]

NARRATIVE: CASE EVENT DATE: 20200210
